FAERS Safety Report 8451344-8 (Version None)
Quarter: 2012Q2

REPORT INFORMATION
  Report Type: 
  Country: None (occurrence: None)
  Receive Date: 20120620
  Receipt Date: 20120223
  Transmission Date: 20120825
  Serious: No
  Sender: FDA-Public Use
  Company Number: US-VERTEX PHARMACEUTICALS INC.-AE-2012-002721

PATIENT
  Sex: Female
  Weight: 61.29 kg

DRUGS (4)
  1. PEGASYS [Concomitant]
     Indication: HEPATITIS C
     Route: 058
     Dates: start: 20120129
  2. PRAMOXINE HCL RECTAL CREAM [Concomitant]
     Indication: ANAL PRURITUS
     Route: 061
     Dates: start: 20120222
  3. INCIVEK [Suspect]
     Indication: HEPATITIS C
     Route: 048
     Dates: start: 20120129
  4. RIBAVIRIN [Concomitant]
     Indication: HEPATITIS C
     Route: 048
     Dates: start: 20120129

REACTIONS (4)
  - HAEMATOCHEZIA [None]
  - DIARRHOEA [None]
  - HEADACHE [None]
  - INSOMNIA [None]
